FAERS Safety Report 8833968 (Version 3)
Quarter: 2012Q4

REPORT INFORMATION
  Report Type: 
  Country: JP (occurrence: JP)
  Receive Date: 20121010
  Receipt Date: 20121031
  Transmission Date: 20130627
  Serious: Yes (Hospitalization)
  Sender: FDA-Public Use
  Company Number: JP-ELI_LILLY_AND_COMPANY-JP201210000869

PATIENT
  Age: 53 Year
  Sex: Female
  Weight: 76.8 kg

DRUGS (7)
  1. CYMBALTA [Suspect]
     Indication: DEPRESSION
     Dosage: 20 mg, qd
     Route: 048
     Dates: start: 20120319, end: 20120824
  2. ACTOS [Concomitant]
     Indication: DIABETES MELLITUS
     Dosage: 15 mg, qd
     Route: 048
     Dates: start: 20110114, end: 20120824
  3. ALOGLIPTIN BENZOATE [Concomitant]
     Indication: DIABETES MELLITUS
     Dosage: 25 mg, qd
     Route: 048
     Dates: start: 20111117
  4. WARFARIN POTASSIUM [Concomitant]
     Indication: MYOCARDIAL INFARCTION
     Dosage: UNK
     Route: 048
     Dates: start: 201207
  5. FAMOTIDIN [Concomitant]
     Indication: GASTRITIS
     Dosage: 10 mg, bid
     Route: 048
     Dates: start: 20110801, end: 20120719
  6. MECOBALAMIN [Concomitant]
     Indication: NEUROPATHY PERIPHERAL
     Dosage: 500 mg, tid
     Route: 048
     Dates: start: 20110801
  7. GLIMEPIRIDE [Concomitant]
     Indication: DIABETES MELLITUS
     Dosage: 1 mg, qd
     Route: 048
     Dates: start: 20110411, end: 20120824

REACTIONS (1)
  - Liver disorder [Recovering/Resolving]
